FAERS Safety Report 25094497 (Version 1)
Quarter: 2025Q1

REPORT INFORMATION
  Report Type: Spontaneous
  Country: US (occurrence: US)
  Receive Date: 20250319
  Receipt Date: 20250319
  Transmission Date: 20250409
  Serious: Yes (Other)
  Sender: MYLAN
  Company Number: US-MYLANLABS-2025M1023064

PATIENT
  Age: 61 Year
  Sex: Female

DRUGS (7)
  1. OXALIPLATIN [Suspect]
     Active Substance: OXALIPLATIN
     Indication: Adenocarcinoma pancreas
  2. FLUOROURACIL [Suspect]
     Active Substance: FLUOROURACIL
     Indication: Adenocarcinoma pancreas
  3. GEMCITABINE [Suspect]
     Active Substance: GEMCITABINE
     Indication: Adenocarcinoma pancreas
  4. LEUCOVORIN [Suspect]
     Active Substance: LEUCOVORIN\LEUCOVORIN CALCIUM
     Indication: Adenocarcinoma pancreas
  5. IRINOTECAN [Suspect]
     Active Substance: IRINOTECAN
     Indication: Adenocarcinoma pancreas
  6. XELODA [Suspect]
     Active Substance: CAPECITABINE
     Indication: Adenocarcinoma pancreas
  7. PACLITAXEL [Suspect]
     Active Substance: PACLITAXEL
     Indication: Adenocarcinoma pancreas

REACTIONS (2)
  - Drug ineffective [Unknown]
  - Disease progression [Unknown]
